FAERS Safety Report 21263091 (Version 1)
Quarter: 2022Q3

REPORT INFORMATION
  Report Type: Spontaneous
  Country: BR (occurrence: BR)
  Receive Date: 20220828
  Receipt Date: 20220828
  Transmission Date: 20221026
  Serious: Yes (Other)
  Sender: FDA-Public Use
  Company Number: BR-NOVARTISPH-NVSC2022BR193132

PATIENT
  Sex: Male
  Weight: 78 kg

DRUGS (4)
  1. TEGRETOL [Suspect]
     Active Substance: CARBAMAZEPINE
     Indication: Epilepsy
     Dosage: 4 DOSAGE FORM, QD (15 YEARS  AGO)
     Route: 048
  2. TEGRETOL [Suspect]
     Active Substance: CARBAMAZEPINE
     Dosage: 4 DOSAGE FORM, QD (STOPPED 3 MONTHS AGO)
     Route: 048
  3. TEGRETOL XR [Suspect]
     Active Substance: CARBAMAZEPINE
     Indication: Epilepsy
     Dosage: 4 DOSAGE FORM, QD
     Route: 048
  4. TEGRETOL [Suspect]
     Active Substance: CARBAMAZEPINE
     Indication: Epilepsy
     Dosage: 8 DOSAGE FORM, QD (3 MONTHS  AGO)
     Route: 048

REACTIONS (5)
  - Epilepsy [Recovered/Resolved]
  - Epilepsy [Not Recovered/Not Resolved]
  - Anxiety [Recovering/Resolving]
  - Congestive cardiomyopathy [Recovering/Resolving]
  - Product availability issue [Unknown]
